FAERS Safety Report 10045828 (Version 2)
Quarter: 2014Q1

REPORT INFORMATION
  Report Type: Spontaneous
  Country: US (occurrence: US)
  Receive Date: 20140328
  Receipt Date: 20140328
  Transmission Date: 20141002
  Serious: Yes (Death)
  Sender: FDA-Public Use
  Company Number: US-TMC-CABO-13003623

PATIENT
  Age: 75 Year
  Sex: Male

DRUGS (5)
  1. COMETRIQ [Suspect]
     Indication: PROSTATE CANCER
     Dosage: 100 MG, QD
     Route: 048
     Dates: start: 20130810, end: 20131104
  2. COMETRIQ [Suspect]
     Dosage: 60 MG, QD
     Route: 048
     Dates: start: 20131105, end: 20140305
  3. NEXIUM [Concomitant]
  4. COUMADIN [Concomitant]
  5. FUROSEMIDE [Concomitant]

REACTIONS (6)
  - Death [Fatal]
  - Nausea [Unknown]
  - Diarrhoea [Unknown]
  - Decreased appetite [Unknown]
  - Malignant neoplasm progression [Unknown]
  - Off label use [Unknown]
